FAERS Safety Report 19744797 (Version 4)
Quarter: 2021Q3

REPORT INFORMATION
  Report Type: Spontaneous
  Country: AU (occurrence: AU)
  Receive Date: 20210825
  Receipt Date: 20210929
  Transmission Date: 20211014
  Serious: Yes (Hospitalization, Other)
  Sender: FDA-Public Use
  Company Number: AU-GLAXOSMITHKLINE-AU2021APC177539

PATIENT

DRUGS (1)
  1. ASMOL (SALBUTAMOL SULPHATE) [Suspect]
     Active Substance: ALBUTEROL SULFATE
     Indication: PRODUCT USED FOR UNKNOWN INDICATION
     Dosage: UNK, 100MCG 1X200D
     Route: 055

REACTIONS (4)
  - Product complaint [Unknown]
  - Underdose [Unknown]
  - Asthma [Unknown]
  - Product dispensing issue [Unknown]
